FAERS Safety Report 18653949 (Version 1)
Quarter: 2020Q4

REPORT INFORMATION
  Report Type: Report from Study
  Country: IT (occurrence: IT)
  Receive Date: 20201223
  Receipt Date: 20201223
  Transmission Date: 20210114
  Serious: Yes (Hospitalization)
  Sender: FDA-Public Use
  Company Number: IT-TEVA-2020-IT-1860303

PATIENT
  Age: 7 Year
  Sex: Female
  Weight: 33 kg

DRUGS (1)
  1. VINCRISTINE [Suspect]
     Active Substance: VINCRISTINE
     Indication: ACUTE LEUKAEMIA
     Route: 042
     Dates: start: 20201101, end: 20201108

REACTIONS (2)
  - Muscular weakness [Not Recovered/Not Resolved]
  - Gait inability [Not Recovered/Not Resolved]

NARRATIVE: CASE EVENT DATE: 20201114
